FAERS Safety Report 7293054 (Version 2)
Quarter: 2014Q1

REPORT INFORMATION
  Report Type: Spontaneous
  Country: US (occurrence: None)
  Receive Date: 20100203
  Receipt Date: 20140102
  Transmission Date: 20141002
  Serious: Yes (Other)
  Sender: FDA-Public Use
  Company Number: 2010S1000362

PATIENT
  Age: 70 Year
  Sex: Female

DRUGS (7)
  1. E-Z PREP [Suspect]
     Indication: COLONOSCOPY
     Dosage: PO
     Route: 048
     Dates: start: 20080212, end: 20080212
  2. METFORMIN (METFORMIN) [Concomitant]
  3. LIPITOR [Concomitant]
  4. PLAVIX [Concomitant]
  5. ASPIRIN [Concomitant]
  6. GLYBURIDE [Concomitant]
  7. VALIUM [Concomitant]

REACTIONS (10)
  - Renal disorder [None]
  - Renal failure acute [None]
  - Large intestine polyp [None]
  - Mental status changes [None]
  - Hypoglycaemia [None]
  - Normochromic normocytic anaemia [None]
  - Diverticulum intestinal [None]
  - Renal failure chronic [None]
  - Nephrogenic anaemia [None]
  - Diabetic nephropathy [None]
